FAERS Safety Report 6427965-0 (Version None)
Quarter: 2009Q4

REPORT INFORMATION
  Report Type: 
  Country: None (occurrence: None)
  Receive Date: 20091105
  Receipt Date: 20091027
  Transmission Date: 20100525
  Serious: Yes (Death)
  Sender: FDA-Public Use
  Company Number: PHEH2009US14686

PATIENT
  Sex: Female

DRUGS (11)
  1. GLEEVEC [Suspect]
     Dosage: 400 MG, QD
     Dates: start: 20060330, end: 20090922
  2. TYLENOL [Concomitant]
  3. OPTIVAR [Concomitant]
  4. LUMIGAN [Concomitant]
  5. DARVOCET-N 100 [Concomitant]
  6. PROTONIX [Concomitant]
  7. FLAGYL [Concomitant]
  8. NICODERM [Concomitant]
  9. LOPRESSOR [Concomitant]
  10. ASPIRIN [Concomitant]
  11. POTASSIUM CHLORIDE [Concomitant]

REACTIONS (1)
  - DEATH [None]
